FAERS Safety Report 4918610-1 (Version None)
Quarter: 2006Q1

REPORT INFORMATION
  Report Type: 
  Country: None (occurrence: None)
  Receive Date: 20060216
  Receipt Date: 20060203
  Transmission Date: 20060701
  Serious: Yes (Hospitalization, Other)
  Sender: FDA-Public Use
  Company Number: 2006018682

PATIENT
  Sex: Female

DRUGS (15)
  1. DETROL LA [Suspect]
     Indication: ILL-DEFINED DISORDER
     Dosage: 4 MG (4 MG, 1 IN 1 D), ORAL
     Route: 048
  2. HUMULIN 70/30 [Suspect]
     Indication: DIABETES MELLITUS
  3. ALL OTHER THERAPEUTIC PRODUCTS [Concomitant]
  4. ZYLOPRIM [Concomitant]
  5. IMDUR [Concomitant]
  6. TEGRETOL [Concomitant]
  7. AMARYL [Concomitant]
  8. DIOVAN ^CIBA-GEIGY^ (VALSARTAN) [Concomitant]
  9. PLAVIX [Concomitant]
  10. ASPIRIN [Concomitant]
  11. SINGULAIR ^MERCK^ (MONTELUKAST SODIUM) [Concomitant]
  12. MULTIVITAMIN [Concomitant]
  13. ANTIVERT ^PFIZER^ (MECLOZINE HYDROCHLORIDE) [Concomitant]
  14. FOSAMAX (ALENDRONATE SODIM) [Concomitant]
  15. FOSAMAX [Concomitant]

REACTIONS (18)
  - BLINDNESS UNILATERAL [None]
  - BLOOD CHOLESTEROL INCREASED [None]
  - COMA [None]
  - CORONARY ARTERY SURGERY [None]
  - CYSTITIS [None]
  - DEPRESSION [None]
  - DRUG EFFECT DECREASED [None]
  - DRY MOUTH [None]
  - DYSPHONIA [None]
  - HAIR TEXTURE ABNORMAL [None]
  - HYPERTENSION [None]
  - IATROGENIC INJURY [None]
  - INSOMNIA [None]
  - LARGE INTESTINE PERFORATION [None]
  - MEDICAL DEVICE COMPLICATION [None]
  - POST PROCEDURAL COMPLICATION [None]
  - STAPHYLOCOCCAL INFECTION [None]
  - VOCAL CORD DISORDER [None]
